FAERS Safety Report 21273502 (Version 1)
Quarter: 2022Q3

REPORT INFORMATION
  Report Type: Spontaneous
  Country: US (occurrence: None)
  Receive Date: 20220830
  Receipt Date: 20220830
  Transmission Date: 20221027
  Serious: Yes (Other)
  Sender: FDA-Public Use
  Company Number: None

PATIENT
  Age: 52 Year
  Sex: Female

DRUGS (2)
  1. ORENCIA [Suspect]
     Active Substance: ABATACEPT
     Indication: Rheumatoid arthritis
     Dosage: INJECT 1 PEN UNDER THE SKIN (SUBCUTANEOUS INJECTION) EVERY WEEK
     Route: 058
     Dates: start: 20211105
  2. TYMLOS [Concomitant]
     Active Substance: ABALOPARATIDE

REACTIONS (3)
  - Rheumatoid arthritis [None]
  - Therapy interrupted [None]
  - Quality of life decreased [None]

NARRATIVE: CASE EVENT DATE: 20220427
